FAERS Safety Report 13998764 (Version 1)
Quarter: 2017Q3

REPORT INFORMATION
  Report Type: Not Available
  Country: US (occurrence: US)
  Receive Date: 20170921
  Receipt Date: 20170921
  Transmission Date: 20171128
  Serious: No
  Sender: FDA-Public Use
  Company Number: US-NEUROCRINE BIOSCIENCES INC.-2017NBI00589

PATIENT
  Age: 56 Year
  Sex: Male

DRUGS (13)
  1. VALPROIC ACID. [Concomitant]
     Active Substance: VALPROIC ACID
  2. VITAMIN E [Concomitant]
     Active Substance: .ALPHA.-TOCOPHEROL
  3. INGREZZA [Suspect]
     Active Substance: VALBENAZINE
     Indication: PRODUCT USED FOR UNKNOWN INDICATION
     Route: 048
     Dates: start: 20170707
  4. SIMVASTATIN. [Concomitant]
     Active Substance: SIMVASTATIN
  5. INVEGA SUSTENNA [Concomitant]
     Active Substance: PALIPERIDONE PALMITATE
  6. LISINOPRIL. [Concomitant]
     Active Substance: LISINOPRIL
  7. OLANZAPINE. [Concomitant]
     Active Substance: OLANZAPINE
  8. PRIMIDONE. [Concomitant]
     Active Substance: PRIMIDONE
  9. BUSPIRONE [Concomitant]
     Active Substance: BUSPIRONE HYDROCHLORIDE
  10. IBUPROFEN. [Concomitant]
     Active Substance: IBUPROFEN
  11. AMANTADINE. [Concomitant]
     Active Substance: AMANTADINE HYDROCHLORIDE
  12. DONEPEZIL. [Concomitant]
     Active Substance: DONEPEZIL
  13. TYLENOL [Concomitant]
     Active Substance: ACETAMINOPHEN

REACTIONS (4)
  - Paranoia [Unknown]
  - Eye discharge [Unknown]
  - Diarrhoea [Unknown]
  - Weight increased [Unknown]

NARRATIVE: CASE EVENT DATE: 20170709
